FAERS Safety Report 20855750 (Version 3)
Quarter: 2022Q3

REPORT INFORMATION
  Report Type: Spontaneous
  Country: US (occurrence: US)
  Receive Date: 20220520
  Receipt Date: 20220729
  Transmission Date: 20221027
  Serious: No
  Sender: FDA-Public Use
  Company Number: US-PFIZER INC-202200584880

PATIENT
  Age: 3 Year
  Sex: Male

DRUGS (1)
  1. EUCRISA [Suspect]
     Active Substance: CRISABOROLE
     Indication: Autism spectrum disorder
     Dosage: APPLY ONE APPLICATION ON TRUNK AND LIMBS
     Route: 061

REACTIONS (2)
  - Off label use [Unknown]
  - Feeling abnormal [Unknown]
